FAERS Safety Report 21411909 (Version 3)
Quarter: 2023Q4

REPORT INFORMATION
  Report Type: Spontaneous
  Country: CH (occurrence: CH)
  Receive Date: 20221005
  Receipt Date: 20231206
  Transmission Date: 20240110
  Serious: Yes (Death, Hospitalization, Other)
  Sender: FDA-Public Use
  Company Number: CH-BAYER-2022A133478

PATIENT
  Age: 64 Year
  Sex: Male
  Weight: 127 kg

DRUGS (14)
  1. ULTRAVIST [Suspect]
     Active Substance: IOPROMIDE
     Indication: Computerised tomogram
     Dosage: 132 ML, ONCE
     Route: 042
     Dates: start: 20220906, end: 20220906
  2. ULTRAVIST [Suspect]
     Active Substance: IOPROMIDE
     Indication: Cancer staging
  3. ASPIRIN [Concomitant]
     Active Substance: ASPIRIN
     Route: 048
  4. ALDACTONE [Concomitant]
     Active Substance: SPIRONOLACTONE
     Dosage: 50 MG
     Route: 048
  5. ATORVASTATIN [Concomitant]
     Active Substance: ATORVASTATIN
     Dosage: 20 MG
     Route: 048
  6. EDARBI [Concomitant]
     Active Substance: AZILSARTAN KAMEDOXOMIL
     Dosage: 80 MG
     Route: 048
  7. XULTOPHY 100/3.6 [Concomitant]
     Active Substance: INSULIN DEGLUDEC\LIRAGLUTIDE
     Route: 058
  8. APIDRA [Concomitant]
     Active Substance: INSULIN GLULISINE
     Dosage: 12 IU; 12-12-10 E
     Route: 058
  9. APIDRA [Concomitant]
     Active Substance: INSULIN GLULISINE
     Dosage: 10 IU
     Route: 058
  10. EMPAGLIFLOZIN\METFORMIN HYDROCHLORIDE [Concomitant]
     Active Substance: EMPAGLIFLOZIN\METFORMIN HYDROCHLORIDE
     Dosage: 5/1000 MG 1-0-1-0
     Route: 048
  11. NOVALGIN (METAMIZOLE SODIUM) [Concomitant]
     Active Substance: METAMIZOLE SODIUM
     Dosage: 1000 MG; 2 SEPARATED DOSES
  12. METOPROLOL SUCCINATE [Concomitant]
     Active Substance: METOPROLOL SUCCINATE
     Dosage: 50 MG
     Route: 048
  13. PANADOL [Concomitant]
     Active Substance: ACETAMINOPHEN
     Dosage: 500 MG
     Route: 048
  14. XARELTO [Concomitant]
     Active Substance: RIVAROXABAN
     Dosage: 20 MG
     Route: 048

REACTIONS (13)
  - Contrast media reaction [Fatal]
  - Cardiac arrest [Fatal]
  - Anaphylactic reaction [Fatal]
  - Loss of consciousness [Not Recovered/Not Resolved]
  - Hypoxic-ischaemic encephalopathy [Not Recovered/Not Resolved]
  - Acute kidney injury [Not Recovered/Not Resolved]
  - Pneumonia aspiration [Not Recovered/Not Resolved]
  - Sternal fracture [Not Recovered/Not Resolved]
  - Pneumothorax [Not Recovered/Not Resolved]
  - Subcutaneous emphysema [Not Recovered/Not Resolved]
  - Rib fracture [Not Recovered/Not Resolved]
  - Dyspnoea [Not Recovered/Not Resolved]
  - Chest pain [None]

NARRATIVE: CASE EVENT DATE: 20220906
